FAERS Safety Report 4609743-8 (Version None)
Quarter: 2005Q1

REPORT INFORMATION
  Report Type: 
  Country: None (occurrence: None)
  Receive Date: 20050314
  Receipt Date: 20050307
  Transmission Date: 20050727
  Serious: Yes (Life-Threatening)
  Sender: FDA-Public Use
  Company Number: 10415

PATIENT
  Age: 52 Year
  Sex: Male

DRUGS (6)
  1. VANCOMYCIN HYDROCHLORIDE [Suspect]
     Dosage: 1 G
     Dates: start: 20030121
  2. MIDAZOLAM [Suspect]
     Dosage: 1 MG
     Dates: start: 20030121
  3. FENTANYL [Suspect]
     Dates: start: 20030121
  4. ROCURONIUM BROMIDE [Suspect]
     Dates: start: 20030121
  5. METARAMINOL TARTRATE [Suspect]
     Dates: start: 20030121
  6. APROTININ [Suspect]
     Dates: start: 20030121

REACTIONS (1)
  - ANAPHYLACTIC REACTION [None]
